FAERS Safety Report 20534716 (Version 2)
Quarter: 2022Q1

REPORT INFORMATION
  Report Type: Spontaneous
  Country: US (occurrence: US)
  Receive Date: 20220302
  Receipt Date: 20220307
  Transmission Date: 20220423
  Serious: No
  Sender: FDA-Public Use
  Company Number: US-JNJFOC-20220259961

PATIENT
  Sex: Female

DRUGS (1)
  1. IMODIUM MULTI-SYMPTOM RELIEF [Suspect]
     Active Substance: DIMETHICONE\LOPERAMIDE HYDROCHLORIDE
     Indication: Irritable bowel syndrome
     Dosage: 1-2 TABLETS ONCE OR TWICE A DAY
     Route: 065

REACTIONS (4)
  - Colitis [Unknown]
  - Therapeutic product effect incomplete [Unknown]
  - Product packaging difficult to open [Unknown]
  - Incorrect dose administered [Unknown]
